FAERS Safety Report 16156915 (Version 1)
Quarter: 2019Q2

REPORT INFORMATION
  Report Type: Spontaneous
  Country: US (occurrence: US)
  Receive Date: 20190404
  Receipt Date: 20190404
  Transmission Date: 20190711
  Serious: No
  Sender: FDA-Public Use
  Company Number: US-DRREDDYS-USA/USA/19/0109173

PATIENT
  Sex: Female
  Weight: 49.5 kg

DRUGS (3)
  1. HABITROL [Suspect]
     Active Substance: NICOTINE
     Indication: SMOKING CESSATION THERAPY
     Dosage: HABITROL TRANSDERMAL NICOTINE REPLACEMENT PATCH STAGE 1 (21MG)
     Route: 062
     Dates: start: 20181001, end: 20181007
  2. HABITROL [Suspect]
     Active Substance: NICOTINE
     Route: 062
  3. CLONAZEPAM. [Concomitant]
     Active Substance: CLONAZEPAM
     Indication: PRODUCT USED FOR UNKNOWN INDICATION

REACTIONS (1)
  - Therapy cessation [Not Recovered/Not Resolved]
